FAERS Safety Report 8903950 (Version 1)
Quarter: 2012Q4

REPORT INFORMATION
  Report Type: 
  Country: BE (occurrence: BE)
  Receive Date: 20121112
  Receipt Date: 20121112
  Transmission Date: 20130627
  Serious: Yes (Hospitalization)
  Sender: FDA-Public Use
  Company Number: BE-MYLANLABS-2012S1022662

PATIENT
  Age: 38 Year
  Sex: Female

DRUGS (1)
  1. SALBUTAMOL [Suspect]
     Indication: ASTHMA
     Dosage: 2 puffs at 5:30am
     Route: 055

REACTIONS (1)
  - Acute myocardial infarction [Recovering/Resolving]
